FAERS Safety Report 19587593 (Version 1)
Quarter: 2021Q3

REPORT INFORMATION
  Report Type: Report from Study
  Country: AU (occurrence: AU)
  Receive Date: 20210721
  Receipt Date: 20210721
  Transmission Date: 20211014
  Serious: Yes (Hospitalization, Other)
  Sender: FDA-Public Use
  Company Number: AU-PFIZER INC-2021865933

PATIENT
  Age: 91 Year
  Sex: Female

DRUGS (1)
  1. METHOTREXATE. [Suspect]
     Active Substance: METHOTREXATE
     Indication: PSORIASIS
     Dosage: 7.5 MG, WEEKLY

REACTIONS (5)
  - Skin exfoliation [Unknown]
  - Pyrexia [Unknown]
  - Dehydration [Unknown]
  - Neutropenia [Unknown]
  - Thrombocytopenia [Unknown]
